FAERS Safety Report 4349875-5 (Version None)
Quarter: 2004Q2

REPORT INFORMATION
  Report Type: 
  Country: None (occurrence: None)
  Receive Date: 20040426
  Receipt Date: 20040413
  Transmission Date: 20050107
  Serious: Yes (Hospitalization)
  Sender: FDA-Public Use
  Company Number: A-CH2004-05631

PATIENT
  Age: 80 Year
  Sex: Female

DRUGS (7)
  1. TRACLEER [Suspect]
     Indication: PULMONARY HYPERTENSION
     Dosage: SEE IMAGE
     Route: 048
     Dates: start: 20030924, end: 20031001
  2. TRACLEER [Suspect]
     Indication: PULMONARY HYPERTENSION
     Dosage: SEE IMAGE
     Route: 048
     Dates: start: 20031001
  3. PREDNISONE TAB [Concomitant]
  4. ENALAPRIL MALEATE [Concomitant]
  5. NICARDIPINE HCL [Concomitant]
  6. BACTRIM FORTE (GTRIMETHOPRIM, SULFAMETHOXAZOLE) [Concomitant]
  7. OMEPRAZOLE [Concomitant]

REACTIONS (5)
  - ANGINA PECTORIS [None]
  - CYTOLYTIC HEPATITIS [None]
  - HEADACHE [None]
  - HEPATIC PAIN [None]
  - TEMPORAL ARTERITIS [None]
